FAERS Safety Report 23282671 (Version 1)
Quarter: 2023Q4

REPORT INFORMATION
  Report Type: Other
  Country: None (occurrence: US)
  Receive Date: 20231211
  Receipt Date: 20231211
  Transmission Date: 20240110
  Serious: Yes (Other)
  Sender: FDA-Public Use
  Company Number: US-Avondale Pharmaceuticals, LLC-2149198

PATIENT
  Age: 68 Year
  Sex: Male

DRUGS (7)
  1. NIACOR [Suspect]
     Active Substance: NIACIN
     Indication: Product used for unknown indication
     Route: 048
  2. TACROLIMUS [Suspect]
     Active Substance: TACROLIMUS
     Route: 065
  3. METHYLPREDNISOLONE [Suspect]
     Active Substance: METHYLPREDNISOLONE
     Route: 065
  4. INSULIN NOS [Suspect]
     Active Substance: INSULIN NOS
     Route: 042
  5. FENOFIBRATE [Suspect]
     Active Substance: FENOFIBRATE
     Route: 065
  6. OMEGA-3 FATTY ACIDS [Suspect]
     Active Substance: OMEGA-3 FATTY ACIDS
     Route: 048
  7. ROSUVASTATIN [Suspect]
     Active Substance: ROSUVASTATIN
     Route: 048

REACTIONS (1)
  - Drug ineffective [Unknown]
